FAERS Safety Report 9734066 (Version 1)
Quarter: 2013Q4

REPORT INFORMATION
  Report Type: Spontaneous
  Country: ES (occurrence: ES)
  Receive Date: 20131205
  Receipt Date: 20131205
  Transmission Date: 20140711
  Serious: Yes (Life-Threatening, Hospitalization)
  Sender: FDA-Public Use
  Company Number: ES-WATSON-2013-22247

PATIENT
  Age: 28 Year
  Sex: Female

DRUGS (5)
  1. LEVETIRACETAM ACTAVIS [Suspect]
     Indication: EPILEPSY
     Dosage: 1500 MG, DAILY
     Route: 048
     Dates: start: 20130806, end: 20130901
  2. RIFAMPICIN (UNKNOWN) [Suspect]
     Indication: TUBERCULOSIS
     Dosage: UNK, DAILY
     Route: 048
     Dates: start: 20130808, end: 20130901
  3. CEMIDON B6 [Suspect]
     Indication: TUBERCULOSIS
     Dosage: UNK, DAILY; CHIESI ESPANA
     Route: 048
     Dates: start: 20130808, end: 20130901
  4. PIRAZINAMIDA [Suspect]
     Indication: TUBERCULOSIS
     Dosage: UNK, DAILY
     Route: 048
     Dates: start: 20130808, end: 20130901
  5. MYAMBUTOL [Suspect]
     Indication: TUBERCULOSIS
     Dosage: 1200 MG, DAILY; TEOFARMA MAH
     Route: 048
     Dates: start: 20130808, end: 20130901

REACTIONS (2)
  - Drug reaction with eosinophilia and systemic symptoms [Recovered/Resolved]
  - Hypertransaminasaemia [Recovering/Resolving]
